FAERS Safety Report 16431304 (Version 2)
Quarter: 2019Q3

REPORT INFORMATION
  Report Type: Spontaneous
  Country: US (occurrence: US)
  Receive Date: 20190614
  Receipt Date: 20190808
  Transmission Date: 20191004
  Serious: Yes (Hospitalization, Other)
  Sender: FDA-Public Use
  Company Number: US-TEVA-2019-US-1060692

PATIENT
  Age: 27 Year
  Sex: Male
  Weight: 87.6 kg

DRUGS (10)
  1. CELEXA [Concomitant]
     Active Substance: CITALOPRAM HYDROBROMIDE
  2. KLONOPIN [Concomitant]
     Active Substance: CLONAZEPAM
  3. GLYCOPYRROLATE. [Concomitant]
     Active Substance: GLYCOPYRROLATE
  4. LACTULOSE. [Concomitant]
     Active Substance: LACTULOSE
  5. LAMOTRIGINE. [Concomitant]
     Active Substance: LAMOTRIGINE
  6. CLOBAZAM. [Concomitant]
     Active Substance: CLOBAZAM
  7. CLOZAPINE. [Suspect]
     Active Substance: CLOZAPINE
     Indication: SCHIZOPHRENIA
     Dosage: 375 MILLIGRAM DAILY; AT BED TIME
     Route: 065
  8. FOLIC ACID. [Concomitant]
     Active Substance: FOLIC ACID
  9. TEGRETOL [Concomitant]
     Active Substance: CARBAMAZEPINE
  10. TOPAMAX [Concomitant]
     Active Substance: TOPIRAMATE

REACTIONS (4)
  - Aggression [Unknown]
  - Agitation [Unknown]
  - White blood cell count increased [Recovered/Resolved with Sequelae]
  - Neutrophil count increased [Unknown]

NARRATIVE: CASE EVENT DATE: 20190531
